FAERS Safety Report 6120518-3 (Version None)
Quarter: 2009Q1

REPORT INFORMATION
  Report Type: 
  Country: None (occurrence: None)
  Receive Date: 20090317
  Receipt Date: 20090305
  Transmission Date: 20090719
  Serious: Yes (Life-Threatening, Hospitalization)
  Sender: FDA-Public Use
  Company Number: US-KINGPHARMUSA00001-K200900250

PATIENT
  Age: 93 Year
  Sex: Female

DRUGS (5)
  1. ALTACE [Suspect]
     Indication: HYPERTENSIVE HEART DISEASE
     Dosage: 2.5 MG, QD
     Route: 048
     Dates: end: 20080622
  2. FUROSEMID                          /00032601/ [Suspect]
     Indication: HYPERTENSIVE HEART DISEASE
     Dosage: 20 MG, QD
     Route: 048
     Dates: end: 20080622
  3. ACETYLSALICYLIC ACID [Concomitant]
     Indication: CARDIAC FAILURE
     Dosage: 100 MG, UNK
     Route: 048
  4. DIGITOXIN TAB [Concomitant]
     Indication: CARDIAC FAILURE
     Dosage: 0.07 MG, UNK
     Route: 048
  5. IBUPROFEN LYSINATE [Concomitant]
     Indication: PAIN
     Dosage: 500 MG, UNK
     Route: 048

REACTIONS (4)
  - DEHYDRATION [None]
  - FAECAL INCONTINENCE [None]
  - HYPOTENSION [None]
  - VOMITING [None]
